FAERS Safety Report 8135138-9 (Version None)
Quarter: 2012Q1

REPORT INFORMATION
  Report Type: 
  Country: None (occurrence: None)
  Receive Date: 20120214
  Receipt Date: 20120206
  Transmission Date: 20120608
  Serious: Yes (Hospitalization, Other)
  Sender: FDA-Public Use
  Company Number: HR-JNJFOC-20110906597

PATIENT
  Age: 50 Year
  Sex: Female

DRUGS (27)
  1. RISPERIDONE [Suspect]
     Route: 048
     Dates: start: 20100201
  2. RISPERIDONE [Suspect]
     Dosage: 2MG IN THE EVENING
     Route: 048
     Dates: start: 20080101
  3. RISPERIDONE [Suspect]
     Indication: BIPOLAR DISORDER
     Dosage: 2 X 2 MG
     Route: 048
     Dates: start: 20110701, end: 20110101
  4. RISPERIDONE [Suspect]
     Route: 048
     Dates: start: 20100201
  5. DEPAKENE [Suspect]
     Route: 065
     Dates: start: 20080101
  6. RISPERIDONE [Suspect]
     Dosage: 2 X 2 MG
     Route: 048
     Dates: start: 20110701, end: 20110101
  7. RISPERIDONE [Suspect]
     Route: 048
     Dates: start: 20081001
  8. RISPERIDONE [Suspect]
     Dosage: 1 IN TWO WEEKS
     Route: 030
     Dates: start: 20110801, end: 20111201
  9. DIAZEPAM [Suspect]
     Indication: PRODUCT USED FOR UNKNOWN INDICATION
     Route: 065
     Dates: start: 20081001
  10. RISPERIDONE [Suspect]
     Route: 048
     Dates: start: 20100201
  11. RISPERIDONE [Suspect]
     Dosage: 1 IN TWO WEEKS
     Route: 030
     Dates: start: 20110801, end: 20111201
  12. RISPERIDONE [Suspect]
     Indication: ALCOHOL ABUSE
     Route: 048
     Dates: start: 20100201
  13. RISPERIDONE [Suspect]
     Route: 048
     Dates: start: 20081001
  14. RISPERIDONE [Suspect]
     Indication: DELUSIONAL DISORDER, PERSECUTORY TYPE
     Dosage: 2MG IN THE EVENING
     Route: 048
     Dates: start: 20080101
  15. RISPERIDONE [Suspect]
     Route: 048
     Dates: start: 20081001
  16. RISPERIDONE [Suspect]
     Route: 030
     Dates: start: 20110101, end: 20110501
  17. RISPERIDONE [Suspect]
     Indication: DELUSIONAL DISORDER, PERSECUTORY TYPE
     Route: 030
     Dates: start: 20110101, end: 20110501
  18. RISPERIDONE [Suspect]
     Dosage: 2 X 2 MG
     Route: 048
     Dates: start: 20110701, end: 20110101
  19. RISPERIDONE [Suspect]
     Route: 048
     Dates: start: 20081001
  20. RISPERIDONE [Suspect]
     Dosage: 2 X 2 MG
     Route: 048
     Dates: start: 20110701, end: 20110101
  21. DEPAKENE [Suspect]
     Indication: BIPOLAR DISORDER
     Route: 065
     Dates: start: 20081001
  22. DIAZEPAM [Suspect]
     Route: 065
     Dates: start: 20110701
  23. RISPERIDONE [Suspect]
     Dosage: 2MG IN THE EVENING
     Route: 048
     Dates: start: 20080101
  24. RISPERIDONE [Suspect]
     Indication: ALCOHOL ABUSE
     Route: 030
     Dates: start: 20111201
  25. RISPERIDONE [Suspect]
     Route: 030
     Dates: start: 20111201
  26. DIAZEPAM [Suspect]
     Route: 065
     Dates: start: 20100201
  27. RISPERIDONE [Suspect]
     Indication: PERSONALITY DISORDER
     Dosage: 2MG IN THE EVENING
     Route: 048
     Dates: start: 20080101

REACTIONS (3)
  - ALCOHOL POISONING [None]
  - DELUSIONAL DISORDER, PERSECUTORY TYPE [None]
  - TREATMENT NONCOMPLIANCE [None]
